FAERS Safety Report 4362472-0 (Version None)
Quarter: 2004Q2

REPORT INFORMATION
  Report Type: 
  Country: None (occurrence: None)
  Receive Date: 20040521
  Receipt Date: 20040517
  Transmission Date: 20050107
  Serious: Yes (Life-Threatening)
  Sender: FDA-Public Use
  Company Number: FR-GLAXOSMITHKLINE-B0333079A

PATIENT
  Age: 3 Month

DRUGS (1)
  1. CLAVENTIN [Suspect]
     Indication: INFECTION PROPHYLAXIS
     Route: 042
     Dates: start: 20040514, end: 20040514

REACTIONS (5)
  - ACCIDENTAL OVERDOSE [None]
  - BLOOD CREATININE INCREASED [None]
  - CONVULSION [None]
  - HYPONATRAEMIA [None]
  - TREMOR [None]
